FAERS Safety Report 4781104-0 (Version None)
Quarter: 2005Q3

REPORT INFORMATION
  Report Type: 
  Country: None (occurrence: None)
  Receive Date: 20050926
  Receipt Date: 20050909
  Transmission Date: 20060218
  Serious: Yes (Hospitalization)
  Sender: FDA-Public Use
  Company Number: 430006E05GBR

PATIENT
  Age: 64 Year
  Sex: Female

DRUGS (4)
  1. NOVANTRONE [Suspect]
  2. ALLOPURINOL [Suspect]
  3. CHLORAMBUCIL [Suspect]
  4. DEXAMETHASONE [Suspect]

REACTIONS (9)
  - ANOREXIA [None]
  - DIARRHOEA [None]
  - GENERALISED ERYTHEMA [None]
  - MUCOSAL INFLAMMATION [None]
  - NAUSEA [None]
  - NEUTROPENIC SEPSIS [None]
  - PYREXIA [None]
  - RENAL IMPAIRMENT [None]
  - VOMITING [None]
